FAERS Safety Report 23252918 (Version 1)
Quarter: 2023Q4

REPORT INFORMATION
  Report Type: Spontaneous
  Country: CL (occurrence: CL)
  Receive Date: 20231201
  Receipt Date: 20231201
  Transmission Date: 20240110
  Serious: Yes (Other)
  Sender: FDA-Public Use
  Company Number: CL-009507513-2311CHL010654

PATIENT
  Age: 41 Year
  Sex: Female

DRUGS (3)
  1. KEYTRUDA [Suspect]
     Active Substance: PEMBROLIZUMAB
     Indication: Triple negative breast cancer
     Dosage: 200 MG EVERY 21 DAYS
     Dates: start: 20230620
  2. GEMCITABINE [Concomitant]
     Active Substance: GEMCITABINE
     Dates: start: 20230620
  3. CARBOPLATIN [Concomitant]
     Active Substance: CARBOPLATIN
     Dates: start: 20230620

REACTIONS (5)
  - Mastectomy [Unknown]
  - Respiratory tract inflammation [Unknown]
  - Hepatic steatosis [Unknown]
  - Paranasal sinus inflammation [Unknown]
  - Cholelithiasis [Unknown]

NARRATIVE: CASE EVENT DATE: 20230101
